FAERS Safety Report 23815407 (Version 4)
Quarter: 2024Q2

REPORT INFORMATION
  Report Type: Spontaneous
  Country: PT (occurrence: PT)
  Receive Date: 20240503
  Receipt Date: 20240611
  Transmission Date: 20240716
  Serious: Yes (Other)
  Sender: FDA-Public Use
  Company Number: None

PATIENT
  Age: 53 Year
  Sex: Female
  Weight: 60 kg

DRUGS (4)
  1. FENTANYL [Suspect]
     Active Substance: FENTANYL\FENTANYL CITRATE
     Indication: Induction of anaesthesia
     Dosage: SINGLE DOSE?FORM OF ADMIN: SOLUTION FOR INJECTION
     Route: 042
     Dates: start: 20240416, end: 20240416
  2. PROPOFOL [Suspect]
     Active Substance: PROPOFOL
     Indication: Induction of anaesthesia
     Dosage: SINGLE DOSE?FORM OF ADMIN: SOLUTION FOR INJECTION
     Route: 042
     Dates: start: 20240416, end: 20240416
  3. ROCURONIUM BROMIDE [Suspect]
     Active Substance: ROCURONIUM BROMIDE
     Indication: Induction of anaesthesia
     Dosage: FORM OF ADMIN: SOLUTION FOR INJECTION?SINGLE DOSE
     Route: 042
     Dates: start: 20240416, end: 20240416
  4. ALFENTANIL HYDROCHLORIDE [Suspect]
     Active Substance: ALFENTANIL HYDROCHLORIDE
     Indication: Induction of anaesthesia
     Dosage: TITRATED DOSE?FORM OF ADMIN: SOLUTION FOR INJECTION
     Route: 042
     Dates: start: 20240416, end: 20240416

REACTIONS (1)
  - Anaphylactic shock [Recovered/Resolved]

NARRATIVE: CASE EVENT DATE: 20240416
